FAERS Safety Report 17835094 (Version 1)
Quarter: 2020Q2

REPORT INFORMATION
  Report Type: Spontaneous
  Country: US (occurrence: US)
  Receive Date: 20200528
  Receipt Date: 20200528
  Transmission Date: 20200714
  Serious: Yes (Hospitalization, Other)
  Sender: FDA-Public Use
  Company Number: US-ACCORD-183280

PATIENT
  Age: 5 Year
  Sex: Male

DRUGS (4)
  1. CISPLATIN. [Suspect]
     Active Substance: CISPLATIN
     Indication: PROSTATE CANCER STAGE II
     Dosage: HIPEC WAS INITIATED USING CISPLATIN AT 1 L/MIN AND INFLOW TEMPERATURE OF 42.5
  2. SODIUM THIOSULFATE [Concomitant]
     Active Substance: SODIUM THIOSULFATE
     Indication: NEPHROPROTECTIVE THERAPY
  3. CISPLATIN. [Suspect]
     Active Substance: CISPLATIN
     Indication: HYPERTHERMIC CHEMOTHERAPY
  4. ELECTROLYTES NOS [Concomitant]
     Active Substance: ELECTROLYTES NOS
     Dosage: PLASMA-LYTE (EACH 100 ML CONTAINS 526 MG OF SODIUM CHLORIDE (NACL); 502 MG OF SODIUM GLUCONATE;

REACTIONS (2)
  - Postoperative ileus [Recovering/Resolving]
  - Urinary tract infection enterococcal [Recovered/Resolved]
